FAERS Safety Report 21610512 (Version 2)
Quarter: 2022Q4

REPORT INFORMATION
  Report Type: Spontaneous
  Country: DK (occurrence: DK)
  Receive Date: 20221117
  Receipt Date: 20221202
  Transmission Date: 20230113
  Serious: Yes (Hospitalization, Other)
  Sender: FDA-Public Use
  Company Number: DK-TEVA-2022-DK-2826321

PATIENT
  Age: 71 Year
  Sex: Male

DRUGS (25)
  1. PREDNISOLONE [Suspect]
     Active Substance: PREDNISOLONE
     Indication: Prostate cancer
     Route: 065
  2. PREDNISOLONE [Suspect]
     Active Substance: PREDNISOLONE
     Indication: Metastases to bone
  3. XGEVA [Suspect]
     Active Substance: DENOSUMAB
     Indication: Prostate cancer
     Dosage: FOR 11 MONTHS
     Route: 065
  4. ENZALUTAMIDE [Suspect]
     Active Substance: ENZALUTAMIDE
     Indication: Prostate cancer
     Route: 065
  5. ENZALUTAMIDE [Suspect]
     Active Substance: ENZALUTAMIDE
     Indication: Metastases to bone
  6. ABIRATERONE [Suspect]
     Active Substance: ABIRATERONE
     Indication: Metastases to bone
     Route: 065
  7. ABIRATERONE [Suspect]
     Active Substance: ABIRATERONE
     Indication: Metastases to bone
  8. CABAZITAXEL [Suspect]
     Active Substance: CABAZITAXEL
     Indication: Metastases to bone
     Route: 065
  9. CABAZITAXEL [Suspect]
     Active Substance: CABAZITAXEL
     Indication: Metastases to bone
  10. ASPIRIN [Concomitant]
     Active Substance: ASPIRIN
     Indication: Hypertension
     Route: 065
  11. ATORVASTATIN [Concomitant]
     Active Substance: ATORVASTATIN
     Indication: Hypertension
     Route: 065
  12. FUROSEMIDE [Concomitant]
     Active Substance: FUROSEMIDE
     Indication: Hypertension
     Route: 065
  13. POTASSIUM CHLORIDE [Concomitant]
     Active Substance: POTASSIUM CHLORIDE
     Indication: Hypertension
     Route: 065
  14. LOSARTAN [Concomitant]
     Active Substance: LOSARTAN
     Indication: Hypertension
     Route: 065
  15. METOPROLOL [Concomitant]
     Active Substance: METOPROLOL
     Indication: Hypertension
     Route: 065
  16. METFORMIN [Concomitant]
     Active Substance: METFORMIN HYDROCHLORIDE
     Indication: Type 2 diabetes mellitus
     Route: 065
  17. AMOXICILLIN\CLAVULANIC ACID [Concomitant]
     Active Substance: AMOXICILLIN\CLAVULANIC ACID
     Indication: Antibiotic prophylaxis
     Dosage: ADMINISTERED 2 DAYS PREOPERATIVELY AND CONTINUED FOR 9 DAYS POSTOPERATIVELY WITH 500 MG AMOXICILL...
     Route: 065
  18. AMOXICILLIN\CLAVULANIC ACID [Concomitant]
     Active Substance: AMOXICILLIN\CLAVULANIC ACID
     Dosage: ADMINISTRATED AS A ONE-SHOT PROPHYLAXIS WITH 1000 MG AMOXICILLIN AND 250 MG CLAVULANIC ACID TABLETS.
     Route: 065
  19. AMOXICILLIN\CLAVULANIC ACID [Concomitant]
     Active Substance: AMOXICILLIN\CLAVULANIC ACID
     Dosage: ADMINISTRATED FOR 10 DAYS POSTOPERATIVELY WITH 500 MG AMOXICILLIN AND 125 MG CLAVULANIC ACID TABL...
     Route: 065
  20. LIDOCAINE HYDROCHLORIDE AND EPINEPHRINE BITARTRATE [Concomitant]
     Active Substance: EPINEPHRINE BITARTRATE\LIDOCAINE HYDROCHLORIDE
     Indication: Local anaesthesia
     Dosage: 10 MG/ML, 5 MICROG/ML
     Route: 065
  21. CHLORHEXIDINE [Concomitant]
     Active Substance: CHLORHEXIDINE
     Indication: Anti-infective therapy
     Dosage: THE ORAL CAVITY WAS RINSED
     Route: 065
  22. EDOXABAN TOSYLATE [Concomitant]
     Active Substance: EDOXABAN TOSYLATE
     Indication: Atrial fibrillation
     Route: 065
  23. BENDROFLUMETHIAZIDE [Concomitant]
     Active Substance: BENDROFLUMETHIAZIDE
     Indication: Hypertension
     Route: 065
  24. POTASSIUM CHLORIDE [Concomitant]
     Active Substance: POTASSIUM CHLORIDE
     Indication: Hypertension
     Route: 065
  25. ATORVASTATIN CALCIUM [Concomitant]
     Active Substance: ATORVASTATIN CALCIUM
     Indication: Hypertension
     Route: 065

REACTIONS (7)
  - Osteonecrosis of jaw [Recovered/Resolved]
  - Peri-implantitis [Unknown]
  - Tooth fracture [Unknown]
  - Abscess [Unknown]
  - Gingivitis [Unknown]
  - Injury associated with device [Unknown]
  - Drug ineffective [Unknown]
